FAERS Safety Report 9012263 (Version 1)
Quarter: 2013Q1

REPORT INFORMATION
  Report Type: Spontaneous
  Country: BE (occurrence: BE)
  Receive Date: 20130114
  Receipt Date: 20130114
  Transmission Date: 20140127
  Serious: Yes (Death)
  Sender: FDA-Public Use
  Company Number: PHHY2013BE002802

PATIENT
  Sex: Female

DRUGS (1)
  1. SANDOSTATINE LAR [Suspect]
     Indication: OBSTRUCTION
     Dosage: 20MG, ONCE PER 28 DAYS
     Route: 030
     Dates: start: 20070101

REACTIONS (1)
  - Death [Fatal]
